FAERS Safety Report 10382840 (Version 1)
Quarter: 2014Q3

REPORT INFORMATION
  Report Type: Spontaneous
  Country: US (occurrence: US)
  Receive Date: 20140813
  Receipt Date: 20140813
  Transmission Date: 20150326
  Serious: No
  Sender: FDA-Public Use
  Company Number: US-SA-2013SA126832

PATIENT
  Age: 25 Year
  Sex: Female
  Weight: 61.4 kg

DRUGS (13)
  1. IBUPROFEN. [Concomitant]
     Active Substance: IBUPROFEN
  2. TYLENOL [Concomitant]
     Active Substance: ACETAMINOPHEN
  3. CEFDINIR. [Concomitant]
     Active Substance: CEFDINIR
  4. NORMAL SALINE [Concomitant]
     Active Substance: SODIUM CHLORIDE
  5. VYVANSE [Concomitant]
     Active Substance: LISDEXAMFETAMINE DIMESYLATE
  6. SODIUM CHLORIDE. [Concomitant]
     Active Substance: SODIUM CHLORIDE
  7. NITROFURANTOIN. [Concomitant]
     Active Substance: NITROFURANTOIN
  8. ALEVE [Concomitant]
     Active Substance: NAPROXEN SODIUM
  9. EPIPEN [Concomitant]
     Active Substance: EPINEPHRINE
  10. MIDOL [Concomitant]
     Active Substance: IBUPROFEN
  11. FABRAZYME [Suspect]
     Active Substance: AGALSIDASE BETA
     Indication: FABRY^S DISEASE
     Route: 042
     Dates: start: 20120706
  12. WATER. [Concomitant]
     Active Substance: WATER
  13. ZOFRAN [Concomitant]
     Active Substance: ONDANSETRON HYDROCHLORIDE

REACTIONS (2)
  - Eye infection [Unknown]
  - Upper respiratory tract infection [Unknown]
